FAERS Safety Report 20377974 (Version 1)
Quarter: 2022Q1

REPORT INFORMATION
  Report Type: Spontaneous
  Country: US (occurrence: US)
  Receive Date: 20220126
  Receipt Date: 20220126
  Transmission Date: 20220424
  Serious: No
  Sender: FDA-Public Use
  Company Number: US-ALLERGAN-2138887US

PATIENT
  Age: 52 Year
  Sex: Male

DRUGS (10)
  1. UBRELVY [Suspect]
     Active Substance: UBROGEPANT
     Indication: Multiple sclerosis
     Dosage: UNK
  2. BACLOFEN [Concomitant]
     Active Substance: BACLOFEN
  3. HYDROCODONE BITARTRATE [Concomitant]
     Active Substance: HYDROCODONE BITARTRATE
  4. FENOFIBRATE [Concomitant]
     Active Substance: FENOFIBRATE
  5. ATORVASTATIN [Concomitant]
     Active Substance: ATORVASTATIN
  6. CALCIUM [Concomitant]
     Active Substance: CALCIUM
  7. ASPIRIN [Concomitant]
     Active Substance: ASPIRIN
  8. LYRICA [Concomitant]
     Active Substance: PREGABALIN
  9. GINKGO [Concomitant]
     Active Substance: GINKGO
  10. VITAMIN D NOS [Concomitant]
     Active Substance: VITAMIN D NOS

REACTIONS (1)
  - Off label use [Unknown]
